FAERS Safety Report 8862727 (Version 2)
Quarter: 2013Q1

REPORT INFORMATION
  Report Type: Spontaneous
  Country: BR (occurrence: BR)
  Receive Date: 20121026
  Receipt Date: 20130328
  Transmission Date: 20140127
  Serious: Yes (Other)
  Sender: FDA-Public Use
  Company Number: PHHY2012BR094546

PATIENT
  Age: 56 Year
  Sex: Female
  Weight: 60 kg

DRUGS (4)
  1. FORASEQ [Suspect]
     Indication: ASTHMA
     Dosage: 1 DF (1 CAPSULE OF EACH TREATMENT), BID
  2. DILACORON [Concomitant]
     Indication: CARDIAC DISORDER
     Dosage: 1 DF, TID
     Route: 048
  3. OMEPRAZOLE [Concomitant]
     Indication: DYSPEPSIA
     Dosage: 1 DF, BID
     Route: 048
  4. PERIDAL//DOMPERIDONE [Concomitant]
     Indication: DYSPEPSIA
     Dosage: 1 DF, BID
     Route: 048

REACTIONS (3)
  - Respiratory disorder [Not Recovered/Not Resolved]
  - Dyspnoea [Unknown]
  - Panic attack [Recovered/Resolved]
